FAERS Safety Report 7716768-2 (Version None)
Quarter: 2011Q3

REPORT INFORMATION
  Report Type: 
  Country: None (occurrence: None)
  Receive Date: 20110829
  Receipt Date: 20110818
  Transmission Date: 20111222
  Serious: Yes (Hospitalization)
  Sender: FDA-Public Use
  Company Number: US-PERRIGO-11US006744

PATIENT
  Age: 88 Year
  Sex: Female

DRUGS (3)
  1. ALPRAZOLAM [Concomitant]
     Indication: GENERALISED ANXIETY DISORDER
     Dosage: UNK
     Route: 065
  2. AMLODIPINE [Concomitant]
     Indication: HYPERTENSION
     Dosage: UNKNOWN
     Route: 065
  3. ACETAMINOPHEN [Suspect]
     Indication: OSTEOARTHRITIS
     Dosage: UNKNOWN MG, PRN
     Route: 048

REACTIONS (4)
  - OVERDOSE [None]
  - NAUSEA [None]
  - VOMITING [None]
  - DECREASED APPETITE [None]
